FAERS Safety Report 17444552 (Version 1)
Quarter: 2020Q1

REPORT INFORMATION
  Report Type: Spontaneous
  Country: US (occurrence: US)
  Receive Date: 20200207
  Receipt Date: 20200207
  Transmission Date: 20200409
  Serious: No
  Sender: FDA-Public Use
  Company Number: None

PATIENT
  Age: 91 Year
  Sex: Female

DRUGS (1)
  1. PROLIA [Suspect]
     Active Substance: DENOSUMAB
     Dosage: ?          OTHER FREQUENCY:UNKNOWN;?
     Route: 058
     Dates: start: 202001, end: 20200207

REACTIONS (4)
  - Weight decreased [None]
  - Dental operation [None]
  - Therapy cessation [None]
  - Tooth disorder [None]

NARRATIVE: CASE EVENT DATE: 20200207
